FAERS Safety Report 7495411-4 (Version None)
Quarter: 2011Q2

REPORT INFORMATION
  Report Type: 
  Country: None (occurrence: None)
  Receive Date: 20110513
  Receipt Date: 20110429
  Transmission Date: 20111010
  Serious: Yes (Hospitalization)
  Sender: FDA-Public Use
  Company Number: TPA2011A02075

PATIENT
  Age: 66 Year
  Sex: Male

DRUGS (6)
  1. AGGRENOX (ACETTYLSALICYLIC ACID, DIPYRIDAMOLE) [Concomitant]
  2. ADENURIC (FEBUXOSTAT) [Suspect]
     Indication: HYPERURICAEMIA
     Dosage: 80 MG (80 MG, 1-20 UNK, (UNK.) ORAL
     Route: 048
     Dates: start: 20110127
  3. TORSEMIDE [Concomitant]
  4. FUROSEMIDE [Concomitant]
  5. METOPROLOLSUCCINAT HEXAL (METOPROLOL SUCCINATE) [Concomitant]
  6. SIMVASTATIN [Suspect]
     Indication: HYPERCHOLESTEROLAEMIA
     Dosage: ORAL
     Route: 048
     Dates: start: 20000101

REACTIONS (2)
  - DRUG INTERACTION [None]
  - RHABDOMYOLYSIS [None]
